FAERS Safety Report 24147607 (Version 1)
Quarter: 2024Q3

REPORT INFORMATION
  Report Type: Spontaneous
  Country: US (occurrence: None)
  Receive Date: 20240727
  Receipt Date: 20240727
  Transmission Date: 20241017
  Serious: Yes (Other)
  Sender: Public
  Company Number: None

PATIENT
  Age: 41 Year
  Sex: Female
  Weight: 85.05 kg

DRUGS (2)
  1. BOTOX [Suspect]
     Active Substance: ONABOTULINUMTOXINA
     Dates: start: 20240718, end: 20240718
  2. COPPER [Concomitant]
     Active Substance: COPPER

REACTIONS (7)
  - Botulism [None]
  - Panic attack [None]
  - Muscle disorder [None]
  - Muscle twitching [None]
  - Fatigue [None]
  - Brain fog [None]
  - Depression [None]

NARRATIVE: CASE EVENT DATE: 20240718
